FAERS Safety Report 17635091 (Version 2)
Quarter: 2020Q2

REPORT INFORMATION
  Report Type: Report from Study
  Country: US (occurrence: US)
  Receive Date: 20200407
  Receipt Date: 20200515
  Transmission Date: 20200713
  Serious: Yes (Death)
  Sender: FDA-Public Use
  Company Number: US-TAIHO ONCOLOGY  INC-EU-2020-01082

PATIENT
  Age: 77 Year
  Sex: Female

DRUGS (13)
  1. LONSURF [Suspect]
     Active Substance: TIPIRACIL HYDROCHLORIDE\TRIFLURIDINE
     Indication: COLON CANCER METASTATIC
     Dosage: UNKNOWN CYCLE
     Route: 048
     Dates: start: 20200210
  2. LOMOTIL [Concomitant]
     Active Substance: ATROPINE SULFATE\DIPHENOXYLATE HYDROCHLORIDE
     Indication: DIARRHOEA
     Dosage: 2.5-0.025 MG PER TABLET; 2 TABLETS
     Route: 048
     Dates: start: 20200226
  3. FERROUS SULFATE. [Concomitant]
     Active Substance: FERROUS SULFATE
     Route: 048
  4. MEGESTROL ACETATE. [Concomitant]
     Active Substance: MEGESTROL ACETATE
     Dosage: 40 MG/ML SUSPENSION
     Route: 048
     Dates: start: 20200226
  5. NORMAL SALINE FLUSH [Concomitant]
     Active Substance: SODIUM CHLORIDE
     Route: 042
  6. PRILOSEC [Concomitant]
     Active Substance: OMEPRAZOLE MAGNESIUM
     Indication: GASTROOESOPHAGEAL REFLUX DISEASE
     Dosage: MAY INCREASE TO BID
  7. MAGNESIUM [Suspect]
     Active Substance: MAGNESIUM
     Route: 048
  8. DECADRON [Concomitant]
     Active Substance: DEXAMETHASONE
     Indication: CANCER PAIN
     Route: 048
     Dates: start: 20200204
  9. METAMUCIL [Concomitant]
     Active Substance: PLANTAGO SEED
     Route: 048
  10. OXYGEN. [Concomitant]
     Active Substance: OXYGEN
  11. MAGNESIUM [Suspect]
     Active Substance: MAGNESIUM
     Indication: PRODUCT USED FOR UNKNOWN INDICATION
     Route: 048
     Dates: start: 20200226
  12. HEPARIN LOCK FLUSH [Concomitant]
     Active Substance: HEPARIN SODIUM
     Dosage: 10 UNIT/ML
  13. NORVASC [Concomitant]
     Active Substance: AMLODIPINE BESYLATE
     Route: 048

REACTIONS (9)
  - Respiratory arrest [Fatal]
  - Sinus tachycardia [Unknown]
  - Asthenia [Unknown]
  - Peripheral swelling [Unknown]
  - Diarrhoea [Unknown]
  - Decreased appetite [Unknown]
  - Disease progression [Fatal]
  - Dehydration [Unknown]
  - Nausea [Unknown]

NARRATIVE: CASE EVENT DATE: 20200312
